FAERS Safety Report 21605068 (Version 1)
Quarter: 2022Q4

REPORT INFORMATION
  Report Type: Spontaneous
  Country: US (occurrence: None)
  Receive Date: 20221115
  Receipt Date: 20221115
  Transmission Date: 20230113
  Serious: Yes (Other)
  Sender: FDA-Public Use
  Company Number: None

PATIENT
  Sex: Male

DRUGS (2)
  1. UNISOM SLEEPTABS [Suspect]
     Active Substance: DOXYLAMINE SUCCINATE
     Indication: Nausea
     Dosage: FREQUENCY : AS NEEDED;?
     Route: 048
     Dates: start: 20220503
  2. LORATADINE [Suspect]
     Active Substance: LORATADINE
     Indication: Hypersensitivity
     Dosage: FREQUENCY : DAILY;?
     Route: 048
     Dates: start: 20220412

REACTIONS (6)
  - Single umbilical artery [None]
  - Maternal exposure during pregnancy [None]
  - Premature delivery [None]
  - Pre-eclampsia [None]
  - Caesarean section [None]
  - Maternal drugs affecting foetus [None]

NARRATIVE: CASE EVENT DATE: 20220726
